FAERS Safety Report 8987858 (Version 3)
Quarter: 2013Q2

REPORT INFORMATION
  Report Type: Spontaneous
  Country: US (occurrence: US)
  Receive Date: 20121227
  Receipt Date: 20130611
  Transmission Date: 20140414
  Serious: Yes (Death, Life-Threatening, Hospitalization, Disabling)
  Sender: FDA-Public Use
  Company Number: US-GLAXOSMITHKLINE-A1006416A

PATIENT
  Age: 81 Year
  Sex: Male
  Weight: 108.2 kg

DRUGS (7)
  1. ARIXTRA [Suspect]
     Indication: PROPHYLAXIS
     Dosage: 7.5MG PER DAY
     Route: 058
     Dates: start: 20121103
  2. NO CONCURRENT MEDICATION [Concomitant]
  3. ZOMETA [Concomitant]
     Dosage: 4MG MONTHLY
     Route: 042
  4. ALIMTA [Concomitant]
  5. B12 [Concomitant]
  6. PREDNISONE [Concomitant]
  7. FOLIC ACID [Concomitant]

REACTIONS (5)
  - Neoplasm malignant [Not Recovered/Not Resolved]
  - Malignant neoplasm progression [Fatal]
  - Sepsis [Unknown]
  - Back pain [Unknown]
  - Lethargy [Unknown]
